FAERS Safety Report 7954565-3 (Version None)
Quarter: 2011Q4

REPORT INFORMATION
  Report Type: 
  Country: None (occurrence: None)
  Receive Date: 20111202
  Receipt Date: 20111122
  Transmission Date: 20120403
  Serious: Yes (Hospitalization, Other)
  Sender: FDA-Public Use
  Company Number: PHHY2011IN34004

PATIENT
  Age: 42 Year
  Sex: Male

DRUGS (8)
  1. FENOFIBRATE [Interacting]
     Indication: DYSLIPIDAEMIA
     Dosage: UNK
  2. CITALOPRAM [Interacting]
     Indication: DEPRESSION
     Dosage: UNK
  3. WARFARIN SODIUM [Interacting]
     Indication: DEEP VEIN THROMBOSIS
     Dosage: UNK
  4. ATORVASTATIN [Interacting]
     Indication: DYSLIPIDAEMIA
     Dosage: UNK
  5. QUETIAPINE [Interacting]
     Indication: DEPRESSION
     Dosage: UNK
  6. DICLOFENAC SODIUM [Suspect]
     Indication: PAIN IN EXTREMITY
     Dosage: UNK
  7. ACETYLSALICYLIC ACID SRT [Interacting]
     Indication: DEEP VEIN THROMBOSIS
     Dosage: UNK
  8. PROPRANOLOL [Interacting]
     Indication: DEPRESSION
     Dosage: UNK

REACTIONS (28)
  - SPINAL CORD HAEMORRHAGE [None]
  - LOSS OF BLADDER SENSATION [None]
  - VENOUS RECANALISATION [None]
  - ARTHRALGIA [None]
  - WOUND SECRETION [None]
  - PURPURA [None]
  - TREMOR [None]
  - BODY TEMPERATURE INCREASED [None]
  - HYPOVOLAEMIC SHOCK [None]
  - URINARY RETENTION [None]
  - DYSKINESIA [None]
  - TENDERNESS [None]
  - MYALGIA [None]
  - DRUG INTERACTION [None]
  - SWELLING [None]
  - OEDEMA PERIPHERAL [None]
  - BACK PAIN [None]
  - SKIN HAEMORRHAGE [None]
  - CONUS MEDULLARIS SYNDROME [None]
  - ECCHYMOSIS [None]
  - RADICULAR PAIN [None]
  - HAEMATOMA [None]
  - PROTHROMBIN TIME PROLONGED [None]
  - SPINAL CORD COMPRESSION [None]
  - PARAPARESIS [None]
  - EXTRADURAL HAEMATOMA [None]
  - MELAENA [None]
  - PARAESTHESIA [None]
